FAERS Safety Report 9249997 (Version 4)
Quarter: 2013Q2

REPORT INFORMATION
  Report Type: Report from Study
  Country: GB (occurrence: GB)
  Receive Date: 20130424
  Receipt Date: 20130620
  Transmission Date: 20140414
  Serious: Yes (Death)
  Sender: FDA-Public Use
  Company Number: GB-ROCHE-1217068

PATIENT
  Age: 79 Year
  Sex: Male

DRUGS (2)
  1. RANIBIZUMAB [Suspect]
     Indication: PRODUCT USED FOR UNKNOWN INDICATION
     Route: 050
     Dates: start: 20101112
  2. RANIBIZUMAB [Suspect]
     Route: 050
     Dates: start: 20120522, end: 20120522

REACTIONS (2)
  - Rectosigmoid cancer [Fatal]
  - Arteriosclerosis [Fatal]
